FAERS Safety Report 14813158 (Version 2)
Quarter: 2018Q2

REPORT INFORMATION
  Report Type: Report from Study
  Country: JP (occurrence: JP)
  Receive Date: 20180426
  Receipt Date: 20180426
  Transmission Date: 20180711
  Serious: Yes (Hospitalization)
  Sender: FDA-Public Use
  Company Number: JP-CONCORDIA PHARMACEUTICALS INC.-GSH201804-001364

PATIENT
  Age: 77 Year
  Sex: Male

DRUGS (17)
  1. BAKTAR [Concomitant]
     Active Substance: SULFAMETHOXAZOLE\TRIMETHOPRIM
  2. NU-LOTAN [Concomitant]
     Active Substance: LOSARTAN POTASSIUM
  3. ERYTHROCIN [Concomitant]
     Active Substance: ERYTHROMYCIN LACTOBIONATE
     Dates: end: 20171109
  4. BONALON [Concomitant]
     Active Substance: ALENDRONATE SODIUM
  5. RHYTHMY [Concomitant]
     Active Substance: RILMAZAFONE HYDROCHLORIDE
  6. ROZEREM [Concomitant]
     Active Substance: RAMELTEON
  7. MAINTATE [Concomitant]
     Active Substance: BISOPROLOL FUMARATE
  8. IMURAN [Concomitant]
     Active Substance: AZATHIOPRINE
     Dates: start: 20170831
  9. ADONA [Concomitant]
     Active Substance: CARBAZOCHROME SODIUM SULFONATE
  10. PLAQUENIL [Suspect]
     Active Substance: HYDROXYCHLOROQUINE SULFATE
     Indication: SYSTEMIC LUPUS ERYTHEMATOSUS
     Route: 048
     Dates: start: 20170405
  11. NEXIUM [Concomitant]
     Active Substance: ESOMEPRAZOLE MAGNESIUM
  12. VESICARE [Concomitant]
     Active Substance: SOLIFENACIN SUCCINATE
  13. INVESTIGATIONAL DRUG [Concomitant]
     Active Substance: INVESTIGATIONAL PRODUCT
  14. KARY UNI [Concomitant]
     Active Substance: PIRENOXINE
  15. PREDNISOLONE. [Concomitant]
     Active Substance: PREDNISOLONE
     Indication: SYSTEMIC LUPUS ERYTHEMATOSUS
     Dates: start: 20170525, end: 20170920
  16. CARNACULIN [Concomitant]
     Active Substance: KALLIDINOGENASE
  17. WARFARIN [Concomitant]
     Active Substance: WARFARIN

REACTIONS (1)
  - Mycobacterium avium complex infection [Recovering/Resolving]

NARRATIVE: CASE EVENT DATE: 20170831
